FAERS Safety Report 6852999-1 (Version None)
Quarter: 2010Q3

REPORT INFORMATION
  Report Type: 
  Country: None (occurrence: None)
  Receive Date: 20100717
  Receipt Date: 20071127
  Transmission Date: 20110219
  Serious: No
  Sender: FDA-Public Use
  Company Number: US-PFIZER INC-2007100787

PATIENT
  Sex: Female
  Weight: 63.636 kg

DRUGS (6)
  1. CHANTIX [Suspect]
     Indication: SMOKING CESSATION THERAPY
     Route: 048
     Dates: start: 20070604, end: 20070618
  2. FOSAMAX [Concomitant]
  3. ACETYLSALICYLIC ACID [Concomitant]
  4. FOLIC ACID [Concomitant]
  5. FLOVENT [Concomitant]
  6. SEREVENT [Concomitant]

REACTIONS (3)
  - EXPIRED DRUG ADMINISTERED [None]
  - INSOMNIA [None]
  - NIGHTMARE [None]
